FAERS Safety Report 6997349-5 (Version None)
Quarter: 2010Q3

REPORT INFORMATION
  Report Type: 
  Country: None (occurrence: None)
  Receive Date: 20100918
  Receipt Date: 20090930
  Transmission Date: 20110219
  Serious: No
  Sender: FDA-Public Use
  Company Number: US-WYE-H11363709

PATIENT
  Sex: Female
  Weight: 72.64 kg

DRUGS (8)
  1. PRISTIQ [Suspect]
     Indication: DEPRESSION
     Route: 048
     Dates: start: 20090901
  2. ATENOLOL [Concomitant]
  3. EVENING PRIMROSE OIL [Concomitant]
  4. NEURONTIN [Concomitant]
  5. VITAMIN E [Concomitant]
  6. VITAMIN D [Concomitant]
  7. XANAX [Concomitant]
  8. TYSABRI [Concomitant]

REACTIONS (2)
  - PYREXIA [None]
  - VOMITING [None]
